FAERS Safety Report 4657359-X (Version None)
Quarter: 2005Q2

REPORT INFORMATION
  Report Type: 
  Country: None (occurrence: None)
  Receive Date: 20050331
  Receipt Date: 20050105
  Transmission Date: 20051028
  Serious: No
  Sender: FDA-Public Use
  Company Number: US106066

PATIENT
  Age: 52 Year
  Sex: Female
  Weight: 92.6 kg

DRUGS (8)
  1. NEULASTA [Suspect]
     Indication: CHEMOTHERAPY
     Dates: start: 20041119
  2. RITUXIMAB [Concomitant]
  3. AMITRIPTYLINE HCL TAB [Concomitant]
  4. ESOMEPRAZOLE MAGNESIUM [Concomitant]
  5. VITAMINS [Concomitant]
  6. SERTRALINE HYDROCHLORIDE [Concomitant]
  7. IBUPROFEN [Concomitant]
  8. ACETAMINOPHEN [Concomitant]

REACTIONS (1)
  - CHEST PAIN [None]
